FAERS Safety Report 9007192 (Version 1)
Quarter: 2013Q1

REPORT INFORMATION
  Report Type: Spontaneous
  Country: US (occurrence: US)
  Receive Date: 20130110
  Receipt Date: 20130110
  Transmission Date: 20140127
  Serious: Yes (Hospitalization)
  Sender: FDA-Public Use
  Company Number: US-GLAXOSMITHKLINE-A1007545A

PATIENT
  Age: 40 Year
  Sex: Female

DRUGS (4)
  1. BENLYSTA [Suspect]
     Route: 042
     Dates: start: 20120220
  2. BENADRYL [Concomitant]
  3. ZOFRAN [Concomitant]
     Route: 042
  4. PHENERGAN [Concomitant]
     Route: 048

REACTIONS (4)
  - Diarrhoea [Unknown]
  - Nausea [Unknown]
  - Vomiting [Unknown]
  - Abdominal pain upper [Unknown]
